FAERS Safety Report 18956872 (Version 1)
Quarter: 2021Q1

REPORT INFORMATION
  Report Type: Spontaneous
  Country: IL (occurrence: IL)
  Receive Date: 20210302
  Receipt Date: 20210302
  Transmission Date: 20210420
  Serious: Yes (Other)
  Sender: FDA-Public Use
  Company Number: IL-LUPIN PHARMACEUTICALS INC.-2021-02508

PATIENT
  Age: 75 Year
  Sex: Male

DRUGS (3)
  1. CLOBETASOL [Suspect]
     Active Substance: CLOBETASOL
     Indication: PEMPHIGOID
     Dosage: UNK UNK, BID (EQUIVALENT TO 0.2?0.3MG)
     Route: 061
  2. CLOBETASOL [Suspect]
     Active Substance: CLOBETASOL
     Dosage: UNK UNK, QD (ONCE PER DAY AT BEDTIME FOR 2 WEEKS)
     Route: 061
  3. CLOBETASOL [Suspect]
     Active Substance: CLOBETASOL
     Dosage: (EVERY OTHER DAY FOR 2 WEEKS) FOLLOWED BY FOR MAINTENANCE THERAPY, HE WAS ASKED TO REPEAT THE TREATM
     Route: 061

REACTIONS (1)
  - Drug ineffective [Unknown]
